FAERS Safety Report 9487594 (Version 3)
Quarter: 2015Q1

REPORT INFORMATION
  Report Type: Spontaneous
  Country: US (occurrence: US)
  Receive Date: 20130725
  Receipt Date: 20150212
  Transmission Date: 20150721
  Serious: Yes (Hospitalization)
  Sender: FDA-Public Use
  Company Number: US-GLAXOSMITHKLINE-A0818026A

PATIENT

DRUGS (10)
  1. AMARYL [Concomitant]
     Active Substance: GLIMEPIRIDE
  2. AMIODARONE [Concomitant]
     Active Substance: AMIODARONE
  3. NEURONTIN [Concomitant]
     Active Substance: GABAPENTIN
  4. POTASSIUM [Concomitant]
     Active Substance: POTASSIUM
  5. PROTONIX [Concomitant]
     Active Substance: PANTOPRAZOLE SODIUM
  6. ZESTRIL [Concomitant]
     Active Substance: LISINOPRIL
  7. AVANDIA [Suspect]
     Active Substance: ROSIGLITAZONE MALEATE
     Indication: DIABETES MELLITUS
     Route: 048
     Dates: start: 20041208, end: 20061219
  8. LASIX [Concomitant]
     Active Substance: FUROSEMIDE
  9. LOPRESSOR [Concomitant]
     Active Substance: METOPROLOL TARTRATE
  10. METFORMIN [Concomitant]
     Active Substance: METFORMIN HYDROCHLORIDE

REACTIONS (1)
  - Cardiac failure congestive [Unknown]
